FAERS Safety Report 22011452 (Version 1)
Quarter: 2023Q1

REPORT INFORMATION
  Report Type: Spontaneous
  Country: CN (occurrence: CN)
  Receive Date: 20230220
  Receipt Date: 20230220
  Transmission Date: 20230417
  Serious: Yes (Hospitalization)
  Sender: FDA-Public Use
  Company Number: CN-PFIZER INC-PV202300030503

PATIENT
  Age: 7 Year
  Sex: Female
  Weight: 19.6 kg

DRUGS (5)
  1. CYTARABINE [Suspect]
     Active Substance: CYTARABINE
     Indication: Acute lymphocytic leukaemia
     Dosage: 1.58 G, 2X/DAY
     Route: 041
     Dates: start: 20230127, end: 20230128
  2. CYTARABINE [Suspect]
     Active Substance: CYTARABINE
     Dosage: 0.03 G, 1X/DAY
     Route: 037
     Dates: start: 20230127, end: 20230127
  3. ETOPOSIDE [Suspect]
     Active Substance: ETOPOSIDE
     Indication: Acute lymphocytic leukaemia
     Dosage: 0.08 G, 2X/DAY
     Route: 041
     Dates: start: 20230129, end: 20230131
  4. DEXAMETHASONE SODIUM PHOSPHATE [Suspect]
     Active Substance: DEXAMETHASONE SODIUM PHOSPHATE
     Indication: Acute lymphocytic leukaemia
     Dosage: 5 MG, 1X/DAY
     Route: 037
     Dates: start: 20230127, end: 20230127
  5. METHOTREXATE [Suspect]
     Active Substance: METHOTREXATE
     Indication: Acute lymphocytic leukaemia
     Dosage: 12 MG, 1X/DAY
     Route: 037
     Dates: start: 20230127, end: 20230127

REACTIONS (4)
  - Myelosuppression [Recovering/Resolving]
  - Bacterial infection [Recovering/Resolving]
  - Neutrophil count decreased [Recovering/Resolving]
  - Platelet count decreased [Recovering/Resolving]

NARRATIVE: CASE EVENT DATE: 20230207
